FAERS Safety Report 4586437-9 (Version None)
Quarter: 2005Q1

REPORT INFORMATION
  Report Type: 
  Country: None (occurrence: None)
  Receive Date: 20050218
  Receipt Date: 20050207
  Transmission Date: 20050727
  Serious: Yes (Life-Threatening, Hospitalization)
  Sender: FDA-Public Use
  Company Number: JP-JNJFOC-20031203942

PATIENT
  Sex: Female
  Weight: 12 kg

DRUGS (22)
  1. REMICADE [Suspect]
     Route: 042
  2. REMICADE [Suspect]
     Route: 042
  3. REMICADE [Suspect]
     Route: 042
  4. REMICADE [Suspect]
     Route: 042
  5. REMICADE [Suspect]
     Route: 042
  6. REMICADE [Suspect]
     Route: 042
  7. REMICADE [Suspect]
     Route: 042
  8. REMICADE [Suspect]
     Dosage: 5 MG/KG
     Route: 042
  9. REMICADE [Suspect]
     Dosage: 5 MG/KG
     Route: 042
  10. REMICADE [Suspect]
     Indication: CROHN'S DISEASE
     Dosage: 1ST DOSE, 5MG/KG
     Route: 042
  11. PREDONINE [Suspect]
     Route: 049
  12. PREDONINE [Suspect]
     Route: 049
  13. PREDONINE [Suspect]
     Route: 049
  14. PREDONINE [Suspect]
     Route: 049
  15. PREDONINE [Suspect]
     Route: 049
  16. PREDONINE [Suspect]
     Indication: CROHN'S DISEASE
     Route: 049
  17. LEUKERIN [Suspect]
     Indication: CROHN'S DISEASE
     Route: 049
  18. SALAZOPYRIN [Concomitant]
     Route: 049
  19. GASTER [Concomitant]
     Route: 049
  20. SELBEX [Concomitant]
     Route: 049
  21. MIYA-BM [Concomitant]
     Indication: PROPHYLAXIS
     Route: 049
  22. ALFAROL [Concomitant]
     Route: 049

REACTIONS (9)
  - BLISTER [None]
  - DEPRESSED LEVEL OF CONSCIOUSNESS [None]
  - DRUG INTERACTION [None]
  - HAEMATOCRIT DECREASED [None]
  - HAEMOGLOBIN DECREASED [None]
  - HERPES ZOSTER [None]
  - IMMUNE SYSTEM DISORDER [None]
  - RASH [None]
  - VARICELLA [None]
